FAERS Safety Report 7220752-5 (Version None)
Quarter: 2011Q1

REPORT INFORMATION
  Report Type: 
  Country: None (occurrence: None)
  Receive Date: 20110111
  Receipt Date: 20110104
  Transmission Date: 20110831
  Serious: Yes (Hospitalization, Other)
  Sender: FDA-Public Use
  Company Number: US-PFIZER INC-2010013756

PATIENT
  Sex: Female
  Weight: 80 kg

DRUGS (4)
  1. PRISTIQ [Suspect]
     Indication: DEPRESSION
     Dosage: 50 MG, DAILY
     Route: 048
     Dates: start: 20091001, end: 20091214
  2. DOXEPIN HCL [Suspect]
     Dosage: 150 MG, DAILY
     Dates: start: 19970201
  3. PAXIL [Suspect]
     Dosage: UNKNOWN DOSE, TAPERING OFF WHEN PRISTIQ WAS STARTED
  4. HALAZEPAM [Concomitant]
     Indication: ANXIETY
     Dosage: 1 MG, AS NEEDED

REACTIONS (10)
  - SEROTONIN SYNDROME [None]
  - DIABETES MELLITUS [None]
  - ASTHENIA [None]
  - NAUSEA [None]
  - HYPERTENSION [None]
  - RENAL FAILURE [None]
  - SUICIDE ATTEMPT [None]
  - PNEUMONIA [None]
  - AMNESIA [None]
  - HALLUCINATION [None]
